FAERS Safety Report 21757843 (Version 1)
Quarter: 2022Q4

REPORT INFORMATION
  Report Type: Other
  Country: US (occurrence: None)
  Receive Date: 20221221
  Receipt Date: 20221221
  Transmission Date: 20230113
  Serious: No
  Sender: FDA-Public Use
  Company Number: US-ROCHE-2787119

PATIENT
  Age: 47 Year
  Sex: Female

DRUGS (4)
  1. ALTEPLASE [Suspect]
     Active Substance: ALTEPLASE
     Indication: Ischaemic stroke
     Route: 065
  2. ALTEPLASE [Suspect]
     Active Substance: ALTEPLASE
     Indication: COVID-19
  3. ALTEPLASE [Suspect]
     Active Substance: ALTEPLASE
     Indication: Cerebral venous sinus thrombosis
  4. ALTEPLASE [Suspect]
     Active Substance: ALTEPLASE
     Indication: Brain oedema

REACTIONS (2)
  - Off label use [Unknown]
  - No adverse event [Unknown]
